FAERS Safety Report 19372042 (Version 1)
Quarter: 2021Q2

REPORT INFORMATION
  Report Type: Spontaneous
  Country: FR (occurrence: FR)
  Receive Date: 20210603
  Receipt Date: 20210603
  Transmission Date: 20210717
  Serious: Yes (Other)
  Sender: FDA-Public Use
  Company Number: FR-ROCHE-2841297

PATIENT
  Sex: Female

DRUGS (2)
  1. AZITHROMYCINE [Concomitant]
     Active Substance: AZITHROMYCIN
  2. ROACTEMRA [Suspect]
     Active Substance: TOCILIZUMAB
     Indication: RHEUMATOID ARTHRITIS
     Route: 058
     Dates: start: 2018

REACTIONS (5)
  - Hip fracture [Unknown]
  - Hypertension [Unknown]
  - Amnesia [Unknown]
  - Blood cholesterol increased [Unknown]
  - Wrist fracture [Unknown]

NARRATIVE: CASE EVENT DATE: 2019
